FAERS Safety Report 5467426-9 (Version None)
Quarter: 2007Q3

REPORT INFORMATION
  Report Type: 
  Country: None (occurrence: None)
  Receive Date: 20070925
  Receipt Date: 20070913
  Transmission Date: 20080115
  Serious: Yes (Other)
  Sender: FDA-Public Use
  Company Number: GB-PFIZER INC-2007077077

PATIENT
  Age: 72 Year
  Sex: Female
  Weight: 67 kg

DRUGS (14)
  1. EXEMESTANE [Suspect]
     Indication: BREAST CANCER
     Route: 048
     Dates: start: 20070425, end: 20070703
  2. AMITRIPTYLINE HCL [Concomitant]
  3. ASPIRIN [Concomitant]
  4. BENDROFLUMETHIAZIDE [Concomitant]
  5. PROCHLORPERAZINE MALEATE [Concomitant]
  6. LEVOCETIRIZINE [Concomitant]
  7. PROCHLORPERAZINE [Concomitant]
  8. QUININE [Concomitant]
  9. RAMIPRIL [Concomitant]
  10. SIMVASTATIN [Concomitant]
  11. TAMOXIFEN CITRATE [Concomitant]
  12. TRAMADOL HCL [Concomitant]
  13. CALCIUM [Concomitant]
  14. VITAMIN D [Concomitant]

REACTIONS (1)
  - HEPATITIS [None]
